FAERS Safety Report 6158495-1 (Version None)
Quarter: 2009Q2

REPORT INFORMATION
  Report Type: 
  Country: None (occurrence: None)
  Receive Date: 20090415
  Receipt Date: 20090415
  Transmission Date: 20091009
  Serious: Yes (Other)
  Sender: FDA-Public Use
  Company Number: None

PATIENT
  Sex: Female
  Weight: 52.1637 kg

DRUGS (1)
  1. SIMCOR [Suspect]
     Indication: BLOOD CHOLESTEROL
     Dosage: 2/DAY EVEN
     Dates: start: 20090314, end: 20090318

REACTIONS (5)
  - DIARRHOEA [None]
  - FLUSHING [None]
  - HEART RATE IRREGULAR [None]
  - PRURITUS [None]
  - VISUAL IMPAIRMENT [None]
